FAERS Safety Report 11307927 (Version 2)
Quarter: 2015Q3

REPORT INFORMATION
  Report Type: Spontaneous
  Country: US (occurrence: US)
  Receive Date: 20150724
  Receipt Date: 20150807
  Transmission Date: 20151125
  Serious: No
  Sender: FDA-Public Use
  Company Number: US-ASTRAZENECA-2015SE68953

PATIENT
  Age: 783 Month
  Sex: Female
  Weight: 92.1 kg

DRUGS (3)
  1. TUDAIR [Concomitant]
  2. PULMICORT FLEXHALER [Suspect]
     Active Substance: BUDESONIDE
     Dosage: ONE PUFF, TWO TIMES A DAY
     Route: 055
  3. PULMICORT FLEXHALER [Suspect]
     Active Substance: BUDESONIDE
     Dosage: ONE PUFF, TWO TIMES A DAY
     Route: 055
     Dates: start: 201506

REACTIONS (3)
  - Back disorder [Unknown]
  - Intentional product misuse [Unknown]
  - Product quality issue [Unknown]

NARRATIVE: CASE EVENT DATE: 201506
